FAERS Safety Report 17209370 (Version 2)
Quarter: 2020Q1

REPORT INFORMATION
  Report Type: Spontaneous
  Country: FR (occurrence: FR)
  Receive Date: 20191227
  Receipt Date: 20200117
  Transmission Date: 20200409
  Serious: No
  Sender: FDA-Public Use
  Company Number: FR-MYLANLABS-2019M1132091

PATIENT
  Age: 41 Year
  Sex: Male
  Weight: 80 kg

DRUGS (3)
  1. HULIO [Suspect]
     Active Substance: ADALIMUMAB
     Indication: PRODUCT USED FOR UNKNOWN INDICATION
     Dosage: UNK
  2. HUMIRA [Suspect]
     Active Substance: ADALIMUMAB
     Indication: PSORIASIS
     Dosage: UNK,SPACING / 6 WEEKS
     Dates: start: 201802
  3. DICLOFENAC [Concomitant]
     Active Substance: DICLOFENAC
     Dosage: UNK

REACTIONS (3)
  - Drug ineffective [Unknown]
  - Abdominal pain [Unknown]
  - Toothache [Unknown]
